FAERS Safety Report 4372033-5 (Version None)
Quarter: 2004Q2

REPORT INFORMATION
  Report Type: 
  Country: None (occurrence: None)
  Receive Date: 20040603
  Receipt Date: 20040603
  Transmission Date: 20050107
  Serious: Yes (Life-Threatening)
  Sender: FDA-Public Use
  Company Number: None

PATIENT
  Age: 39 Year
  Sex: Male
  Weight: 63.5036 kg

DRUGS (2)
  1. VIREAD [Suspect]
     Dosage: HIV
  2. COMBIVIR [Suspect]

REACTIONS (6)
  - ANAEMIA [None]
  - BONE MARROW TOXICITY [None]
  - DIARRHOEA [None]
  - HEPATIC STEATOSIS [None]
  - HEPATOMEGALY [None]
  - LACTIC ACIDOSIS [None]
